FAERS Safety Report 23603618 (Version 1)
Quarter: 2024Q1

REPORT INFORMATION
  Report Type: Spontaneous
  Country: DE (occurrence: DE)
  Receive Date: 20240307
  Receipt Date: 20240307
  Transmission Date: 20240410
  Serious: Yes (Death, Life-Threatening, Hospitalization, Other)
  Sender: FDA-Public Use
  Company Number: DE-BoehringerIngelheim-2019-BI-002793

PATIENT
  Age: 62 Year
  Sex: Male
  Weight: 79 kg

DRUGS (4)
  1. DOCETAXEL [Suspect]
     Active Substance: DOCETAXEL\DOCETAXEL ANHYDROUS
     Indication: Lung adenocarcinoma
     Dosage: 60 MILLIGRAM/SQ. METER (TOTAL DAILY DOSE: 60 MG/M2 BSA)
     Route: 042
  2. NINTEDANIB [Suspect]
     Active Substance: NINTEDANIB
     Indication: Lung adenocarcinoma
     Dosage: 400 MILLIGRAM, ONCE A DAY
     Route: 048
     Dates: start: 20181128
  3. NINTEDANIB [Suspect]
     Active Substance: NINTEDANIB
     Dosage: 200 MILLIGRAM, ONCE A DAY
     Route: 048
  4. NINTEDANIB [Suspect]
     Active Substance: NINTEDANIB
     Dosage: 100 MILLIGRAM (0.5 PER DAY)
     Route: 048
     Dates: start: 20181128, end: 20190122

REACTIONS (4)
  - Respiratory failure [Fatal]
  - Nausea [Fatal]
  - Vomiting [Fatal]
  - Pulmonary sepsis [Fatal]

NARRATIVE: CASE EVENT DATE: 20190119
